FAERS Safety Report 6149115-0 (Version None)
Quarter: 2009Q2

REPORT INFORMATION
  Report Type: 
  Country: None (occurrence: None)
  Receive Date: 20090407
  Receipt Date: 20090323
  Transmission Date: 20091009
  Serious: Yes (Hospitalization)
  Sender: FDA-Public Use
  Company Number: 230133M09USA

PATIENT
  Age: 61 Year
  Sex: Female
  Weight: 64 kg

DRUGS (7)
  1. REBIF [Suspect]
     Indication: RELAPSING-REMITTING MULTIPLE SCLEROSIS
     Dosage: 44 MCG, 3 IN 1 DAYS, SUBCUTANEOUS
     Route: 058
  2. LEXAPRO [Concomitant]
  3. ENABLEX (DARIFENACIN) [Concomitant]
  4. ZOCOR (ZOCOR CARDIO ASS) [Concomitant]
  5. BENTYL [Concomitant]
  6. CITRICAL (CALCIUM CARBONATE) [Concomitant]
  7. MULTIVITAMIN (MULTIVITAMIN /00831701/) [Concomitant]

REACTIONS (7)
  - DIZZINESS [None]
  - FALL [None]
  - LEFT ATRIAL DILATATION [None]
  - SYNCOPE [None]
  - UPPER RESPIRATORY TRACT INFECTION [None]
  - URINARY TRACT INFECTION [None]
  - WHITE BLOOD CELL COUNT DECREASED [None]
